FAERS Safety Report 20739156 (Version 1)
Quarter: 2022Q2

REPORT INFORMATION
  Report Type: Spontaneous
  Country: US (occurrence: US)
  Receive Date: 20220422
  Receipt Date: 20220422
  Transmission Date: 20220721
  Serious: No
  Sender: FDA-Public Use
  Company Number: US-APOTEX-2022AP005537

PATIENT
  Age: 71 Year
  Sex: Male

DRUGS (10)
  1. FLUTICASONE [Suspect]
     Active Substance: FLUTICASONE
     Indication: Hypersensitivity
     Dosage: 4 DOSAGE FORM, QD (2 SPRAYS IN EACH NOSTRIL DAILY)
     Route: 045
  2. DIAZEPAM [Concomitant]
     Active Substance: DIAZEPAM
     Indication: Anxiety
     Dosage: UNK
     Route: 065
  3. METOPROLOL [Concomitant]
     Active Substance: METOPROLOL
     Indication: Hypertension
     Dosage: 1 DOSAGE FORM, BID
     Route: 065
  4. LISINOPRIL [Concomitant]
     Active Substance: LISINOPRIL
     Indication: Cardiac disorder
     Dosage: 10 MILLIGRAM, QD
     Route: 065
  5. HYDROCHLOROTHIAZIDE [Concomitant]
     Active Substance: HYDROCHLOROTHIAZIDE
     Indication: Cardiac disorder
     Dosage: 25 MILLIGRAM, QD
     Route: 065
  6. ALLOPURINOL [Concomitant]
     Active Substance: ALLOPURINOL
     Indication: Gout
     Dosage: 300 MILLIGRAM, QD
     Route: 065
  7. PREDNISONE [Concomitant]
     Active Substance: PREDNISONE
     Indication: Inflammation
     Dosage: 1 DOSAGE FORM
     Route: 065
  8. WARFARIN [Concomitant]
     Active Substance: WARFARIN
     Indication: Anticoagulant therapy
     Dosage: 1 DOSAGE FORM, 3X A WEEK (SATURDAY, SUNDAY)
     Route: 065
  9. WARFARIN [Concomitant]
     Active Substance: WARFARIN
     Dosage: UNK, HALF OF THE PILL BEING TAKEN ON MONDAY, TUESDAY, THURSDAY AND FRIDAY
     Route: 065
  10. ASPIRIN [Concomitant]
     Active Substance: ASPIRIN
     Indication: Balance disorder
     Dosage: UNK
     Route: 065

REACTIONS (2)
  - Balance disorder [Recovered/Resolved]
  - Dizziness [Recovered/Resolved]
